FAERS Safety Report 13226444 (Version 1)
Quarter: 2017Q1

REPORT INFORMATION
  Report Type: Spontaneous
  Country: US (occurrence: US)
  Receive Date: 20170213
  Receipt Date: 20170213
  Transmission Date: 20170428
  Serious: No
  Sender: FDA-Public Use
  Company Number: US-BAYER-2017-028543

PATIENT
  Sex: Female

DRUGS (2)
  1. MIRALAX [Suspect]
     Active Substance: POLYETHYLENE GLYCOL 3350
     Indication: GASTROINTESTINAL DISORDER
     Dosage: ABOUT HALF A CAPFUL, QD
     Route: 048
     Dates: start: 2016, end: 201702
  2. MIRALAX [Suspect]
     Active Substance: POLYETHYLENE GLYCOL 3350
     Indication: CONSTIPATION

REACTIONS (2)
  - Product use issue [Unknown]
  - Product use issue [Unknown]

NARRATIVE: CASE EVENT DATE: 2016
